FAERS Safety Report 5105833-4 (Version None)
Quarter: 2006Q3

REPORT INFORMATION
  Report Type: 
  Country: None (occurrence: None)
  Receive Date: 20060915
  Receipt Date: 20060501
  Transmission Date: 20061208
  Serious: Yes (Hospitalization, Disabling)
  Sender: FDA-Public Use
  Company Number: US-GLAXOSMITHKLINE-A0603967A

PATIENT
  Age: 16 Year
  Sex: Male
  Weight: 64 kg

DRUGS (1)
  1. PAXIL CR [Suspect]
     Indication: DEPRESSION
     Dosage: 25MG PER DAY
     Route: 048
     Dates: start: 20040201, end: 20040701

REACTIONS (18)
  - AGITATION [None]
  - ANXIETY [None]
  - BIPOLAR I DISORDER [None]
  - BRADYCARDIA [None]
  - BRAIN CONTUSION [None]
  - CONFUSIONAL STATE [None]
  - DEPRESSION [None]
  - DRUG INEFFECTIVE [None]
  - EMOTIONAL DISTRESS [None]
  - EXCORIATION [None]
  - HAEMORRHAGE INTRACRANIAL [None]
  - HEADACHE [None]
  - INJURY [None]
  - LACERATION [None]
  - MOOD SWINGS [None]
  - SUICIDAL IDEATION [None]
  - SUICIDE ATTEMPT [None]
  - TRAUMATIC BRAIN INJURY [None]
